FAERS Safety Report 6982656-2 (Version None)
Quarter: 2010Q3

REPORT INFORMATION
  Report Type: 
  Country: None (occurrence: None)
  Receive Date: 20100914
  Receipt Date: 20100304
  Transmission Date: 20110219
  Serious: Yes (Other)
  Sender: FDA-Public Use
  Company Number: US-PFIZER INC-2010028423

PATIENT
  Sex: Female
  Weight: 75.737 kg

DRUGS (2)
  1. LYRICA [Suspect]
     Indication: FIBROMYALGIA
     Dosage: 450 MG, 1X/DAY
     Route: 048
  2. KLONOPIN [Concomitant]
     Indication: SLEEP DISORDER
     Dosage: 1 MG, UNK
     Route: 048

REACTIONS (6)
  - AFFECT LABILITY [None]
  - EYE PRURITUS [None]
  - LACRIMATION INCREASED [None]
  - VISION BLURRED [None]
  - VITAMIN D DECREASED [None]
  - WEIGHT INCREASED [None]
